FAERS Safety Report 25305452 (Version 1)
Quarter: 2025Q2

REPORT INFORMATION
  Report Type: Spontaneous
  Country: US (occurrence: US)
  Receive Date: 20250513
  Receipt Date: 20250513
  Transmission Date: 20250717
  Serious: No
  Sender: ROCHE
  Company Number: US-ROCHE-10000280514

PATIENT
  Sex: Female

DRUGS (9)
  1. AVASTIN [Suspect]
     Active Substance: BEVACIZUMAB
     Indication: Brain neoplasm malignant
     Route: 065
  2. GLEOSTINE CAP 10 MG [Concomitant]
  3. OLANZAPINE TAB 5 MG [Concomitant]
  4. LEVETIRACETAM TAB 500 MG [Concomitant]
  5. Lidocaine-Prilocaine Cream 2.5-2.5% [Concomitant]
  6. LORAZEPAM TAB 1 MG [Concomitant]
  7. DEXAMETHASON TAB 2 MG [Concomitant]
  8. TRAMADOL HCL TAB 50 MG [Concomitant]
  9. ONDANSETRON TAB 8 MG [Concomitant]

REACTIONS (2)
  - Anxiety [Not Recovered/Not Resolved]
  - Arthralgia [Not Recovered/Not Resolved]
